FAERS Safety Report 10797135 (Version 1)
Quarter: 2015Q1

REPORT INFORMATION
  Report Type: Spontaneous
  Country: US (occurrence: US)
  Receive Date: 20150216
  Receipt Date: 20150216
  Transmission Date: 20150721
  Serious: Yes (Other)
  Sender: FDA-Public Use
  Company Number: US-BAYER-2015-021048

PATIENT

DRUGS (1)
  1. HELIXATE FS [Suspect]
     Active Substance: ANTIHEMOPHILIC FACTOR, HUMAN RECOMBINANT
     Indication: FACTOR VIII DEFICIENCY
     Dosage: UNK, Q3WK, MONDAY, WEDNESDAY, FRIDAY
     Route: 042

REACTIONS (3)
  - Back pain [Recovered/Resolved]
  - Muscle tightness [Recovered/Resolved]
  - Haemarthrosis [Recovered/Resolved]
